FAERS Safety Report 4592285-6 (Version None)
Quarter: 2005Q1

REPORT INFORMATION
  Report Type: 
  Country: None (occurrence: None)
  Receive Date: 20050228
  Receipt Date: 20041117
  Transmission Date: 20050727
  Serious: No
  Sender: FDA-Public Use
  Company Number: US-BRISTOL-MYERS SQUIBB COMPANY-12768420

PATIENT
  Age: 69 Year
  Sex: Female

DRUGS (13)
  1. ABILIFY [Suspect]
     Indication: MANIA
     Dates: start: 20040622
  2. GLUCOPHAGE [Concomitant]
  3. GLYBURIDE [Concomitant]
  4. ESTRADERM [Concomitant]
     Route: 062
  5. K-DUR 10 [Concomitant]
  6. DARVON COMPOUND [Concomitant]
  7. COREG [Concomitant]
  8. LANOXIN [Concomitant]
  9. LASIX [Concomitant]
  10. ZAROXOLYN [Concomitant]
  11. PRAVACHOL [Concomitant]
  12. LEVOTHYROXINE [Concomitant]
  13. LISINOPRIL [Concomitant]

REACTIONS (1)
  - HYPERGLYCAEMIA [None]
